FAERS Safety Report 19168538 (Version 1)
Quarter: 2021Q2

REPORT INFORMATION
  Report Type: Spontaneous
  Country: US (occurrence: US)
  Receive Date: 20210422
  Receipt Date: 20210422
  Transmission Date: 20210717
  Serious: Yes (Hospitalization)
  Sender: FDA-Public Use
  Company Number: US-SUN PHARMACEUTICAL INDUSTRIES LTD-2021R1-292698

PATIENT
  Age: 2 Year
  Sex: Male

DRUGS (1)
  1. CLONIDINE. [Suspect]
     Active Substance: CLONIDINE
     Indication: PRODUCT USED FOR UNKNOWN INDICATION
     Dosage: 6?12 TABLETS (PILLS)
     Route: 065

REACTIONS (4)
  - Accidental overdose [Recovering/Resolving]
  - Mental status changes [Recovering/Resolving]
  - Somnolence [Recovering/Resolving]
  - Sinus bradycardia [Recovering/Resolving]
